FAERS Safety Report 10962367 (Version 3)
Quarter: 2015Q3

REPORT INFORMATION
  Report Type: Spontaneous
  Country: US (occurrence: US)
  Receive Date: 20150327
  Receipt Date: 20150904
  Transmission Date: 20151125
  Serious: No
  Sender: FDA-Public Use
  Company Number: US-009507513-1503USA010098

PATIENT
  Age: 77 Year
  Sex: Female
  Weight: 87.75 kg

DRUGS (8)
  1. JANUVIA [Suspect]
     Active Substance: SITAGLIPTIN PHOSPHATE
     Dosage: UNK
     Route: 048
  2. MAXZIDE [Concomitant]
     Active Substance: HYDROCHLOROTHIAZIDE\TRIAMTERENE
     Indication: BRONCHITIS
     Dosage: UNK
     Route: 048
     Dates: start: 20150301, end: 20150410
  3. PAROXETINE [Concomitant]
     Active Substance: PAROXETINE\PAROXETINE HYDROCHLORIDE
     Dosage: UNK
  4. COUMADIN [Concomitant]
     Active Substance: WARFARIN SODIUM
     Dosage: UNK
  5. PROPRANOLOL HYDROCHLORIDE. [Concomitant]
     Active Substance: PROPRANOLOL HYDROCHLORIDE
     Dosage: UNK
     Route: 048
  6. AMOXIL [Concomitant]
     Active Substance: AMOXICILLIN
     Indication: BRONCHITIS
     Dosage: UNK
     Dates: start: 20150301, end: 20150410
  7. SULFAMETHOXAZOLE (+) TRIMETHOPRIM [Concomitant]
     Active Substance: SULFAMETHOXAZOLE\TRIMETHOPRIM
     Dosage: UNK
  8. SIMVASTATIN TABLETS, USP [Concomitant]
     Active Substance: SIMVASTATIN
     Dosage: UNK

REACTIONS (25)
  - Bilirubin conjugated increased [Unknown]
  - Red blood cell count decreased [Unknown]
  - Blood glucose increased [Unknown]
  - Alanine aminotransferase increased [Unknown]
  - Glycosylated haemoglobin increased [Unknown]
  - Red cell distribution width increased [Unknown]
  - Lymphocyte percentage decreased [Unknown]
  - Glomerular filtration rate decreased [Unknown]
  - Blood glucose decreased [Recovered/Resolved]
  - Blood creatinine increased [Unknown]
  - Low density lipoprotein increased [Unknown]
  - Blood glucose increased [Recovered/Resolved]
  - International normalised ratio increased [Unknown]
  - Blood sodium decreased [Unknown]
  - Mean cell haemoglobin concentration decreased [Unknown]
  - Monocyte percentage increased [Unknown]
  - Cardioactive drug level decreased [Unknown]
  - Blood alkaline phosphatase increased [Unknown]
  - Aspartate aminotransferase increased [Unknown]
  - Mean platelet volume increased [Unknown]
  - Neutrophil percentage increased [Unknown]
  - Anion gap decreased [Unknown]
  - Blood urea increased [Unknown]
  - Fatigue [Recovered/Resolved]
  - Hyperhidrosis [Recovered/Resolved]

NARRATIVE: CASE EVENT DATE: 20150312
